FAERS Safety Report 6573417-7 (Version None)
Quarter: 2010Q1

REPORT INFORMATION
  Report Type: 
  Country: None (occurrence: None)
  Receive Date: 20100208
  Receipt Date: 20100129
  Transmission Date: 20100710
  Serious: Yes (Hospitalization)
  Sender: FDA-Public Use
  Company Number: CH-WYE-G05451010

PATIENT
  Age: 30 Year
  Sex: Female

DRUGS (4)
  1. EFFEXOR [Suspect]
     Route: 048
     Dates: start: 20090527
  2. RISPERDAL [Interacting]
     Route: 048
     Dates: start: 20090910, end: 20090914
  3. SEROQUEL [Interacting]
     Route: 048
     Dates: start: 20090819, end: 20090909
  4. SEROQUEL [Interacting]
     Dosage: IN RESERVE, UP TO 500 MG
     Route: 048
     Dates: start: 20090910

REACTIONS (2)
  - AKATHISIA [None]
  - DRUG INTERACTION [None]
